FAERS Safety Report 8970968 (Version 1)
Quarter: 2012Q4

REPORT INFORMATION
  Report Type: 
  Country: US (occurrence: US)
  Receive Date: 20121218
  Receipt Date: 20121218
  Transmission Date: 20130627
  Serious: No
  Sender: FDA-Public Use
  Company Number: US-BRISTOL-MYERS SQUIBB COMPANY-17005661

PATIENT
  Age: 32 Year
  Sex: Female

DRUGS (4)
  1. ABILIFY [Suspect]
     Indication: DEPRESSION
     Dosage: at bed time
  2. ABILIFY [Suspect]
     Indication: EMOTIONAL DISORDER
     Dosage: at bed time
  3. LEXAPRO [Concomitant]
  4. PREMPHASE [Concomitant]
     Dosage: Frequency-in mrng

REACTIONS (1)
  - Somnolence [Unknown]
